FAERS Safety Report 9914136 (Version 2)
Quarter: 2014Q1

REPORT INFORMATION
  Report Type: Spontaneous
  Country: US (occurrence: US)
  Receive Date: 20140220
  Receipt Date: 20140312
  Transmission Date: 20141002
  Serious: Yes (Death, Hospitalization)
  Sender: FDA-Public Use
  Company Number: US-PFIZER INC-2014046678

PATIENT
  Age: 83 Year
  Sex: Female

DRUGS (1)
  1. VFEND [Suspect]
     Indication: BRONCHIECTASIS
     Dosage: TWO 50MG TABLETS TWICE DAILY
     Dates: start: 20110415

REACTIONS (1)
  - Pneumonia [Fatal]
